FAERS Safety Report 21957720 (Version 1)
Quarter: 2023Q1

REPORT INFORMATION
  Report Type: Report from Study
  Country: US (occurrence: US)
  Receive Date: 20230206
  Receipt Date: 20230206
  Transmission Date: 20230418
  Serious: Yes (Other)
  Sender: FDA-Public Use
  Company Number: US-PARATEK PHARMACEUTICALS, INC.-2022PTK00428

PATIENT
  Age: 24 Year
  Sex: Female
  Weight: 63.492 kg

DRUGS (4)
  1. NUZYRA [Suspect]
     Active Substance: OMADACYCLINE
     Indication: Atypical mycobacterial infection
     Dosage: 300 MG, 1X/DAY
     Route: 048
     Dates: start: 20221123, end: 202301
  2. ELIQUIS [Suspect]
     Active Substance: APIXABAN
     Indication: Jugular vein thrombosis
     Dosage: UNK
     Route: 048
     Dates: start: 202301, end: 202301
  3. ELIQUIS [Suspect]
     Active Substance: APIXABAN
     Indication: Thrombosis
     Dosage: 10 MG, 1X/DAY
     Route: 048
     Dates: start: 20230121
  4. ^A LOT^ OF UNSPECIFIED CONCOMITANT PRODUCTS [Concomitant]

REACTIONS (11)
  - Internal haemorrhage [Recovering/Resolving]
  - Ulcer [Recovering/Resolving]
  - Haematemesis [Recovering/Resolving]
  - Thrombosis [Unknown]
  - Jugular vein thrombosis [Unknown]
  - Abdominal pain lower [Recovering/Resolving]
  - Drug interaction [Recovered/Resolved]
  - Nausea [Recovered/Resolved]
  - Vomiting [Recovered/Resolved]
  - Wrong technique in product usage process [Recovered/Resolved]
  - Off label use [Recovered/Resolved]

NARRATIVE: CASE EVENT DATE: 20220101
